FAERS Safety Report 10086400 (Version 1)
Quarter: 2014Q2

REPORT INFORMATION
  Report Type: Spontaneous
  Country: PL (occurrence: PL)
  Receive Date: 20140418
  Receipt Date: 20140418
  Transmission Date: 20141212
  Serious: Yes (Other)
  Sender: FDA-Public Use
  Company Number: PL-TEVA-475966ISR

PATIENT
  Sex: Female

DRUGS (1)
  1. DIUVER [Suspect]

REACTIONS (1)
  - Renal failure [Recovered/Resolved]
